FAERS Safety Report 5574060-9 (Version None)
Quarter: 2007Q4

REPORT INFORMATION
  Report Type: 
  Country: None (occurrence: None)
  Receive Date: 20071221
  Receipt Date: 20071210
  Transmission Date: 20080405
  Serious: No
  Sender: FDA-Public Use
  Company Number: 2007S1013155

PATIENT
  Age: 53 Year
  Sex: Female

DRUGS (1)
  1. GEN-CLOZAPINE (CLOZAPINE) [Suspect]
     Dates: start: 20070130

REACTIONS (1)
  - DEATH [None]
